FAERS Safety Report 26101132 (Version 1)
Quarter: 2025Q4

REPORT INFORMATION
  Report Type: Spontaneous
  Country: US (occurrence: US)
  Receive Date: 20251128
  Receipt Date: 20251128
  Transmission Date: 20260117
  Serious: Yes (Other)
  Sender: SANDOZ
  Company Number: US-SANDOZ-SDZ2025US088485

PATIENT
  Age: 41 Year
  Sex: Female
  Weight: 66 kg

DRUGS (2)
  1. IRON SUCROSE [Suspect]
     Active Substance: IRON SUCROSE
     Indication: Iron deficiency anaemia
     Dosage: 200 MG, QW
     Route: 042
     Dates: start: 20251011, end: 20251119
  2. IRON SUCROSE [Suspect]
     Active Substance: IRON SUCROSE
     Indication: Blood loss anaemia

REACTIONS (3)
  - Infusion site mass [Recovered/Resolved]
  - Infusion site pain [Recovered/Resolved]
  - Infusion site paraesthesia [Recovered/Resolved]

NARRATIVE: CASE EVENT DATE: 20251113
